FAERS Safety Report 9146980 (Version 1)
Quarter: 2013Q1

REPORT INFORMATION
  Report Type: Report from Study
  Country: FR (occurrence: FR)
  Receive Date: 20130307
  Receipt Date: 20130307
  Transmission Date: 20140127
  Serious: Yes (Hospitalization)
  Sender: FDA-Public Use
  Company Number: FR-ROCHE-1198728

PATIENT
  Age: 34 Year
  Sex: Male

DRUGS (5)
  1. SOMATROPIN [Suspect]
     Indication: GROWTH HORMONE DEFICIENCY
     Dosage: 10 MG/2ML
     Route: 058
     Dates: start: 20070417, end: 201201
  2. HYDROCORTISONE [Concomitant]
     Route: 065
  3. LEVOTHYROX [Concomitant]
     Route: 065
  4. MINIRIN [Concomitant]
     Route: 065
  5. ANDROTARDYL [Concomitant]
     Route: 065
     Dates: end: 201201

REACTIONS (1)
  - Arachnoid cyst [Recovered/Resolved with Sequelae]
